FAERS Safety Report 7753557-7 (Version None)
Quarter: 2011Q3

REPORT INFORMATION
  Report Type: 
  Country: None (occurrence: None)
  Receive Date: 20110915
  Receipt Date: 20110908
  Transmission Date: 20111222
  Serious: Yes (Death)
  Sender: FDA-Public Use
  Company Number: US-GLAXOSMITHKLINE-A0759010A

PATIENT
  Age: 50 Year
  Sex: Male
  Weight: 85.9 kg

DRUGS (2)
  1. AVANDIA [Suspect]
     Indication: TYPE 2 DIABETES MELLITUS
     Dosage: 4MG PER DAY
     Route: 048
     Dates: start: 20041116, end: 20061112
  2. METFORMIN HYDROCHLORIDE [Concomitant]
     Dates: start: 20020920, end: 20061111

REACTIONS (3)
  - VENTRICULAR ARRHYTHMIA [None]
  - HYPERLIPIDAEMIA [None]
  - CORONARY ARTERY DISEASE [None]
